FAERS Safety Report 4860881-4 (Version None)
Quarter: 2005Q4

REPORT INFORMATION
  Report Type: 
  Country: None (occurrence: None)
  Receive Date: 20051216
  Receipt Date: 20051216
  Transmission Date: 20060501
  Serious: Yes (Hospitalization)
  Sender: FDA-Public Use
  Company Number: None

PATIENT
  Age: 68 Year
  Sex: Female
  Weight: 52.6173 kg

DRUGS (4)
  1. CETUXIMAB 400 MG/M2 X 1 DOSE [Suspect]
     Indication: NEOPLASM MALIGNANT
     Dosage: 580 MG IV X 1
     Route: 042
     Dates: start: 20051031
  2. CETUXIMAB 250 MG/M2 X 3 DOSES [Suspect]
     Indication: NEOPLASM MALIGNANT
     Dosage: 363 MG IV X 3
     Route: 042
     Dates: start: 20051107
  3. CETUXIMAB 250 MG/M2 X 3 DOSES [Suspect]
     Indication: NEOPLASM MALIGNANT
     Dosage: 363 MG IV X 3
     Route: 042
     Dates: start: 20051114
  4. CETUXIMAB 250 MG/M2 X 3 DOSES [Suspect]
     Indication: NEOPLASM MALIGNANT
     Dosage: 363 MG IV X 3
     Route: 042
     Dates: start: 20051121

REACTIONS (6)
  - ABDOMINAL ADHESIONS [None]
  - ABDOMINAL PAIN [None]
  - DIFFICULT TO WEAN FROM VENTILATOR [None]
  - ENDOTRACHEAL INTUBATION COMPLICATION [None]
  - FEEDING TUBE COMPLICATION [None]
  - THERAPY NON-RESPONDER [None]
